FAERS Safety Report 19801126 (Version 1)
Quarter: 2021Q3

REPORT INFORMATION
  Report Type: Spontaneous
  Country: US (occurrence: US)
  Receive Date: 20210907
  Receipt Date: 20210907
  Transmission Date: 20211014
  Serious: No
  Sender: FDA-Public Use
  Company Number: US-JACOBUS PHARMACEUTICAL COMPANY, INC.-2118085

PATIENT
  Age: 27 Year
  Sex: Female

DRUGS (13)
  1. RUZURGI [Suspect]
     Active Substance: AMIFAMPRIDINE
     Indication: MYASTHENIC SYNDROME
     Route: 048
     Dates: start: 20210114
  2. BIOTIN [Concomitant]
     Active Substance: BIOTIN
  3. CELECOXIB. [Concomitant]
     Active Substance: CELECOXIB
  4. ERGOCALCIFEROL. [Concomitant]
     Active Substance: ERGOCALCIFEROL
  5. MULTIVITAMIN [Concomitant]
     Active Substance: VITAMINS
  6. DULOXETINE. [Concomitant]
     Active Substance: DULOXETINE
  7. IMITREX [Concomitant]
     Active Substance: SUMATRIPTAN SUCCINATE
  8. DIAZEPAM. [Concomitant]
     Active Substance: DIAZEPAM
  9. METHYLPHENIDATE. [Concomitant]
     Active Substance: METHYLPHENIDATE
  10. HYDRALAZINE [Concomitant]
     Active Substance: HYDRALAZINE HYDROCHLORIDE
  11. HYDROXYZINE [Concomitant]
     Active Substance: HYDROXYZINE HYDROCHLORIDE
  12. PANTOPRAZOLE SODIUM. [Concomitant]
     Active Substance: PANTOPRAZOLE SODIUM
  13. PYRIDOSTIGMINE BROMIDE. [Concomitant]
     Active Substance: PYRIDOSTIGMINE BROMIDE

REACTIONS (2)
  - Asthenia [Unknown]
  - Gait disturbance [Unknown]
